FAERS Safety Report 5333389-X (Version None)
Quarter: 2007Q2

REPORT INFORMATION
  Report Type: 
  Country: None (occurrence: None)
  Receive Date: 20070521
  Receipt Date: 20070102
  Transmission Date: 20071010
  Serious: Yes (Hospitalization)
  Sender: FDA-Public Use
  Company Number: 2007000012

PATIENT
  Age: 74 Year
  Sex: Female

DRUGS (4)
  1. ERLOTINIB (TABLET) [Suspect]
     Indication: NON-SMALL CELL LUNG CANCER
     Dosage: 100 MG QD, ORAL
     Route: 048
  2. BEVACIZUMAB (INJECTION FOR INFUSION) [Suspect]
     Dosage: INTRAVENOUS
     Route: 042
     Dates: start: 20060717
  3. REGLAN [Concomitant]
  4. PROCRIT [Concomitant]

REACTIONS (1)
  - IRON DEFICIENCY ANAEMIA [None]
